FAERS Safety Report 23354200 (Version 15)
Quarter: 2025Q3

REPORT INFORMATION
  Report Type: Report from Study
  Country: CA (occurrence: CA)
  Receive Date: 20240101
  Receipt Date: 20250926
  Transmission Date: 20251020
  Serious: Yes (Life-Threatening, Other)
  Sender: TAKEDA
  Company Number: CA-TAKEDA-2023TUS104740

PATIENT
  Age: 80 Year
  Sex: Female

DRUGS (13)
  1. VEDOLIZUMAB [Suspect]
     Active Substance: VEDOLIZUMAB
     Indication: Colitis ulcerative
  2. VEDOLIZUMAB [Suspect]
     Active Substance: VEDOLIZUMAB
     Dosage: 300 MILLIGRAM, Q4WEEKS
     Dates: start: 20231026
  3. VEDOLIZUMAB [Suspect]
     Active Substance: VEDOLIZUMAB
     Dosage: 300 MILLIGRAM, Q4WEEKS
  4. VEDOLIZUMAB [Suspect]
     Active Substance: VEDOLIZUMAB
     Dosage: 300 MILLIGRAM, Q4WEEKS
  5. VEDOLIZUMAB [Suspect]
     Active Substance: VEDOLIZUMAB
     Dosage: 300 MILLIGRAM, Q4WEEKS
  6. VEDOLIZUMAB [Suspect]
     Active Substance: VEDOLIZUMAB
     Dosage: 300 MILLIGRAM, Q4WEEKS
  7. VEDOLIZUMAB [Suspect]
     Active Substance: VEDOLIZUMAB
     Dosage: 300 MILLIGRAM, Q4WEEKS
  8. VEDOLIZUMAB [Suspect]
     Active Substance: VEDOLIZUMAB
     Dosage: 300 MILLIGRAM, Q4WEEKS
  9. VEDOLIZUMAB [Suspect]
     Active Substance: VEDOLIZUMAB
     Dosage: 300 MILLIGRAM, Q4WEEKS
  10. VEDOLIZUMAB [Suspect]
     Active Substance: VEDOLIZUMAB
  11. VEDOLIZUMAB [Suspect]
     Active Substance: VEDOLIZUMAB
     Dosage: 300 MILLIGRAM, Q4WEEKS
  12. Teva 5 asa [Concomitant]
  13. PREDNISONE [Concomitant]
     Active Substance: PREDNISONE

REACTIONS (23)
  - Rectal discharge [Not Recovered/Not Resolved]
  - Rectal haemorrhage [Unknown]
  - Intestinal stenosis [Unknown]
  - Diarrhoea haemorrhagic [Not Recovered/Not Resolved]
  - Constipation [Not Recovered/Not Resolved]
  - Colitis ulcerative [Unknown]
  - Haematochezia [Unknown]
  - Fatigue [Unknown]
  - Off label use [Unknown]
  - Poor venous access [Unknown]
  - Anxiety [Unknown]
  - Increased tendency to bruise [Unknown]
  - Skin laxity [Unknown]
  - Faeces discoloured [Unknown]
  - Abdominal pain lower [Unknown]
  - Weight increased [Unknown]
  - Hypophagia [Unknown]
  - Defaecation urgency [Unknown]
  - Furuncle [Unknown]
  - Frequent bowel movements [Unknown]
  - Diarrhoea [Unknown]
  - Malaise [Unknown]
  - Asthenia [Unknown]

NARRATIVE: CASE EVENT DATE: 20240920
